FAERS Safety Report 14046571 (Version 2)
Quarter: 2017Q4

REPORT INFORMATION
  Report Type: Report from Study
  Country: US (occurrence: US)
  Receive Date: 20171005
  Receipt Date: 20171018
  Transmission Date: 20180321
  Serious: Yes (Hospitalization)
  Sender: FDA-Public Use
  Company Number: US-EISAI MEDICAL RESEARCH-EC-2017-030564

PATIENT
  Age: 74 Year
  Sex: Female
  Weight: 60 kg

DRUGS (15)
  1. AFINITOR [Concomitant]
     Active Substance: EVEROLIMUS
  2. PRAVASTATIN. [Concomitant]
     Active Substance: PRAVASTATIN
  3. LENVIMA [Suspect]
     Active Substance: LENVATINIB
     Route: 048
     Dates: start: 2017, end: 2017
  4. NORCO [Concomitant]
     Active Substance: ACETAMINOPHEN\HYDROCODONE BITARTRATE
  5. INDAPAMIDE. [Concomitant]
     Active Substance: INDAPAMIDE
  6. REMERON [Suspect]
     Active Substance: MIRTAZAPINE
     Indication: PRODUCT USED FOR UNKNOWN INDICATION
     Dates: start: 20170923
  7. LOSARTAN. [Concomitant]
     Active Substance: LOSARTAN
  8. TOUJEO [Concomitant]
     Active Substance: INSULIN GLARGINE
  9. LORAZEPAM. [Concomitant]
     Active Substance: LORAZEPAM
  10. TEMAZEPAM. [Concomitant]
     Active Substance: TEMAZEPAM
  11. HYDROXYZINE [Concomitant]
     Active Substance: HYDROXYZINE HYDROCHLORIDE
  12. LENVIMA [Suspect]
     Active Substance: LENVATINIB
     Indication: RENAL CANCER
     Route: 048
     Dates: start: 20170815, end: 2017
  13. AMLODIPINE [Concomitant]
     Active Substance: AMLODIPINE BESYLATE
  14. MIRTAZAPINE. [Concomitant]
     Active Substance: MIRTAZAPINE
  15. CARVEDILOL. [Concomitant]
     Active Substance: CARVEDILOL

REACTIONS (4)
  - Decreased appetite [Unknown]
  - Diarrhoea [Unknown]
  - Fatigue [Not Recovered/Not Resolved]
  - Weight decreased [Unknown]

NARRATIVE: CASE EVENT DATE: 201708
